FAERS Safety Report 25031967 (Version 1)
Quarter: 2025Q1

REPORT INFORMATION
  Report Type: Spontaneous
  Country: US (occurrence: None)
  Receive Date: 20250303
  Receipt Date: 20250303
  Transmission Date: 20250409
  Serious: Yes (Other)
  Sender: FDA-CTU
  Company Number: None

PATIENT
  Sex: Female

DRUGS (11)
  1. ORENCIA [Suspect]
     Active Substance: ABATACEPT
     Indication: Rheumatoid arthritis
     Dates: start: 20200909
  2. ALBUTEROL AER HFA [Concomitant]
  3. ARAVA TAB 10MG [Concomitant]
  4. CYMBAL TA CAP 30MG [Concomitant]
  5. DIAZEPAM TAB 5MG [Concomitant]
  6. DOXYCYC MONO TAB 100MG [Concomitant]
  7. DULOXETINE CAP 60MG [Concomitant]
  8. FAMOTIDINE [Concomitant]
     Active Substance: FAMOTIDINE
  9. HYDROCODONE BITARTRATE [Concomitant]
     Active Substance: HYDROCODONE BITARTRATE
  10. ACETAMINOPHEN\HYDROCODONE [Concomitant]
     Active Substance: ACETAMINOPHEN\HYDROCODONE
  11. HYDROXYCHLOROQUINE [Concomitant]
     Active Substance: HYDROXYCHLOROQUINE

REACTIONS (3)
  - Therapeutic product ineffective [None]
  - Impaired quality of life [None]
  - Intentional dose omission [None]
